FAERS Safety Report 13504590 (Version 1)
Quarter: 2017Q2

REPORT INFORMATION
  Report Type: Spontaneous
  Country: US (occurrence: US)
  Receive Date: 20170502
  Receipt Date: 20170502
  Transmission Date: 20170830
  Serious: No
  Sender: FDA-Public Use
  Company Number: US-WARNER CHILCOTT-2017-000189

PATIENT
  Sex: Female

DRUGS (1)
  1. FEMRING [Suspect]
     Active Substance: ESTRADIOL ACETATE
     Dosage: 1 FEMRING EVERY 90 DAYS
     Route: 067

REACTIONS (4)
  - Hot flush [Unknown]
  - Vulvovaginal mycotic infection [Unknown]
  - Drug dose omission [Unknown]
  - Vulvovaginal dryness [Unknown]
